FAERS Safety Report 6751116-6 (Version None)
Quarter: 2010Q2

REPORT INFORMATION
  Report Type: 
  Country: None (occurrence: None)
  Receive Date: 20100602
  Receipt Date: 20100525
  Transmission Date: 20101027
  Serious: Yes (Other)
  Sender: FDA-Public Use
  Company Number: US-ASTRAZENECA-2009SE29784

PATIENT
  Age: 65 Year
  Sex: Female
  Weight: 57.2 kg

DRUGS (13)
  1. TOPROL-XL [Suspect]
     Indication: HYPERTENSION
     Route: 048
     Dates: start: 20080901
  2. TOPROL-XL [Suspect]
     Route: 048
  3. LISINOPRIL [Concomitant]
     Route: 048
  4. CRESTOR [Concomitant]
     Indication: DIABETES MELLITUS
     Route: 048
  5. INSULIN [Concomitant]
     Indication: DIABETES MELLITUS
     Dosage: SLIDING SCALE AS REQUIRED
  6. ALBUTEROL [Concomitant]
     Indication: ASTHMA
  7. ASTELIN [Concomitant]
     Indication: ASTHMA
  8. AZMACORT [Concomitant]
     Indication: ASTHMA
  9. NASONEX [Concomitant]
  10. PROGESTERON [Concomitant]
  11. PREMARIN [Concomitant]
  12. ASPIRIN [Concomitant]
  13. VALIUM [Concomitant]
     Indication: ANXIETY

REACTIONS (12)
  - BLINDNESS TRANSIENT [None]
  - HEADACHE [None]
  - INTENTIONAL DRUG MISUSE [None]
  - MEMORY IMPAIRMENT [None]
  - MENTAL DISORDER [None]
  - PAIN IN EXTREMITY [None]
  - PARKINSONIAN GAIT [None]
  - PHOTOPSIA [None]
  - SOMNOLENCE [None]
  - SYNCOPE [None]
  - TENDON PAIN [None]
  - VISION BLURRED [None]
